FAERS Safety Report 18187411 (Version 2)
Quarter: 2020Q3

REPORT INFORMATION
  Report Type: Spontaneous
  Country: US (occurrence: US)
  Receive Date: 20200824
  Receipt Date: 20200826
  Transmission Date: 20201103
  Serious: No
  Sender: FDA-Public Use
  Company Number: US-PFIZER INC-2020324593

PATIENT
  Age: 72 Year
  Sex: Female

DRUGS (2)
  1. GENOTROPIN MQ [Suspect]
     Active Substance: SOMATROPIN
     Dosage: UNK
  2. GENOTROPIN MQ [Suspect]
     Active Substance: SOMATROPIN
     Indication: PITUITARY TUMOUR
     Dosage: 0.4 MG, DAILY (2 INJECTIONS OF 0.2 DAILY)
     Dates: start: 202005

REACTIONS (7)
  - Feeling jittery [Unknown]
  - Depression [Unknown]
  - Insomnia [Unknown]
  - Off label use [Unknown]
  - Product use in unapproved indication [Unknown]
  - Drug effective for unapproved indication [Unknown]
  - Sluggishness [Unknown]

NARRATIVE: CASE EVENT DATE: 20200818
